FAERS Safety Report 5428467-0 (Version None)
Quarter: 2007Q3

REPORT INFORMATION
  Report Type: 
  Country: None (occurrence: None)
  Receive Date: 20070824
  Receipt Date: 20070814
  Transmission Date: 20080115
  Serious: Yes (Other)
  Sender: FDA-Public Use
  Company Number: MC200700549

PATIENT
  Age: 70 Year
  Sex: Male
  Weight: 48.9885 kg

DRUGS (3)
  1. ANGIOMAX [Suspect]
     Indication: PERCUTANEOUS CORONARY INTERVENTION
     Dosage: 0.75 MG/KG, BOLUS, IV BOLUS; 1.75 MG/KG, HR, INTRAVENOUS
     Route: 040
  2. HEPARIN [Suspect]
     Indication: CATHETERISATION CARDIAC
     Dosage: INTRAVENOUS
     Route: 042
  3. INTEGRILIN [Suspect]
     Indication: CATHETERISATION CARDIAC
     Dosage: INTRAVENOUS
     Route: 042

REACTIONS (4)
  - AGITATION [None]
  - ARTERIAL RUPTURE [None]
  - COAGULATION TIME ABNORMAL [None]
  - CORONARY ARTERY DISSECTION [None]
